FAERS Safety Report 6735875-4 (Version None)
Quarter: 2010Q2

REPORT INFORMATION
  Report Type: 
  Country: None (occurrence: None)
  Receive Date: 20100521
  Receipt Date: 20100514
  Transmission Date: 20101027
  Serious: Yes (Disabling)
  Sender: FDA-Public Use
  Company Number: A0859784A

PATIENT
  Age: 55 Year
  Sex: Female

DRUGS (3)
  1. LAMICTAL [Suspect]
     Indication: BIPOLAR DISORDER
     Dosage: 100MG PER DAY
     Route: 048
     Dates: start: 20080101, end: 20090101
  2. VITAMIN E [Suspect]
  3. UNKNOWN PSYCHOTROPIC [Concomitant]

REACTIONS (4)
  - DYSKINESIA [None]
  - JOINT STIFFNESS [None]
  - PAIN IN JAW [None]
  - TARDIVE DYSKINESIA [None]
